FAERS Safety Report 4897039-9 (Version None)
Quarter: 2006Q1

REPORT INFORMATION
  Report Type: 
  Country: None (occurrence: None)
  Receive Date: 20060127
  Receipt Date: 20060116
  Transmission Date: 20060701
  Serious: Yes (Other)
  Sender: FDA-Public Use
  Company Number: 2006011035

PATIENT
  Age: 74 Year
  Sex: Male

DRUGS (2)
  1. VFEND [Suspect]
     Indication: BLOOD BETA-D-GLUCAN INCREASED
     Dosage: 400 MG, INTRAVENOUS
     Route: 042
     Dates: start: 20051230
  2. UNSPECIFIED ANTICANCER DRUG (ANTINEOPLASTIC AGENTS) [Concomitant]

REACTIONS (5)
  - BLOOD FIBRINOGEN ABNORMAL [None]
  - BLOOD POTASSIUM DECREASED [None]
  - BONE MARROW FAILURE [None]
  - OLIGURIA [None]
  - PROTHROMBIN LEVEL ABNORMAL [None]
